FAERS Safety Report 21483252 (Version 2)
Quarter: 2022Q4

REPORT INFORMATION
  Report Type: Report from Study
  Country: BE (occurrence: BE)
  Receive Date: 20221020
  Receipt Date: 20221028
  Transmission Date: 20230113
  Serious: Yes (Hospitalization)
  Sender: FDA-Public Use
  Company Number: BE-ABBVIE-4167421

PATIENT
  Sex: Female
  Weight: 71 kg

DRUGS (9)
  1. CARBIDOPA\LEVODOPA [Suspect]
     Active Substance: CARBIDOPA\LEVODOPA
     Indication: Parkinson^s disease
     Dosage: MD 5.0 ML; CD 4.6 ML/HR DURING 16 HOURS; ED 2.0 ML; CND 3.4 ML/HR
     Route: 050
     Dates: start: 20220818
  2. CARBIDOPA\LEVODOPA [Suspect]
     Active Substance: CARBIDOPA\LEVODOPA
     Route: 050
     Dates: start: 20160222
  3. CARBIDOPA\LEVODOPA [Suspect]
     Active Substance: CARBIDOPA\LEVODOPA
     Dosage: MD 5.0 ML; CD 4.4 ML/HR DURING 16 HOURS; ED 2.0 ML; CND 3.4 ML/HR
     Route: 050
     Dates: start: 20220513, end: 20220818
  4. AZILECT [Concomitant]
     Active Substance: RASAGILINE MESYLATE
     Indication: Product used for unknown indication
     Dosage: FREQUENCY TEXT: AT 8.00 HOUR ?FORM STRENGTH: 1 MG
     Route: 065
  5. REQUIP [Concomitant]
     Active Substance: ROPINIROLE HYDROCHLORIDE
     Indication: Product used for unknown indication
     Dosage: FORM STRENGTH 8 MG?FREQUENCY TEXT: AT 8.00 HOUR
     Route: 065
  6. BENSERAZIDE\LEVODOPA [Concomitant]
     Active Substance: BENSERAZIDE\LEVODOPA
     Indication: Product used for unknown indication
     Dosage: FREQUENCY TEXT: 5.30-8.30-11.30-14.30-17-30-20-30 HOUR ?FORM STRENGTH: 250 MG?3/4
     Route: 065
  7. COMTAN [Concomitant]
     Active Substance: ENTACAPONE
     Indication: Product used for unknown indication
     Dosage: 5.30-8.30-11.30-14.30-17-30-20-30 HOUR ?FORM STRENGTH: 200 MG
     Route: 065
  8. TRAZODONE [Concomitant]
     Active Substance: TRAZODONE HYDROCHLORIDE
     Indication: Product used for unknown indication
     Route: 065
  9. CYANOCOBALAMIN\FOLIC ACID\PYRIDOXINE HYDROCHLORIDE [Concomitant]
     Active Substance: CYANOCOBALAMIN\FOLIC ACID\PYRIDOXINE HYDROCHLORIDE
     Indication: Product used for unknown indication
     Dosage: TIME INTERVAL: 0.33333333 DAYS
     Route: 065

REACTIONS (1)
  - Thrombosis [Unknown]
